FAERS Safety Report 8259048-1 (Version None)
Quarter: 2012Q2

REPORT INFORMATION
  Report Type: 
  Country: None (occurrence: None)
  Receive Date: 20120404
  Receipt Date: 20120330
  Transmission Date: 20120825
  Serious: Yes (Life-Threatening, Hospitalization, Other)
  Sender: FDA-Public Use
  Company Number: US-ASTRAZENECA-2011SE25519

PATIENT
  Age: 20922 Day
  Sex: Male

DRUGS (6)
  1. LAMICTAL [Concomitant]
  2. TRAZODONE HCL [Concomitant]
     Indication: SLEEP DISORDER
     Dosage: 50-100 MG AS NEEDED
  3. EFFEXOR XR [Concomitant]
  4. ABILIFY [Concomitant]
  5. SEROQUEL [Suspect]
     Indication: BIPOLAR DISORDER
     Route: 048
  6. KLONOPIN [Concomitant]

REACTIONS (14)
  - CEREBROVASCULAR ACCIDENT [None]
  - BRAIN INJURY [None]
  - CARDIAC ARREST [None]
  - DYSPHAGIA [None]
  - BIPOLAR DISORDER [None]
  - SUICIDE ATTEMPT [None]
  - PROSTATIC OPERATION [None]
  - MEMORY IMPAIRMENT [None]
  - PROSTATE CANCER METASTATIC [None]
  - NEOPLASM MALIGNANT [None]
  - DEPRESSION [None]
  - ROAD TRAFFIC ACCIDENT [None]
  - INTENTIONAL DRUG MISUSE [None]
  - SENSORY LOSS [None]
